FAERS Safety Report 5425248-9 (Version None)
Quarter: 2007Q3

REPORT INFORMATION
  Report Type: 
  Country: None (occurrence: None)
  Receive Date: 20070824
  Receipt Date: 20070813
  Transmission Date: 20080115
  Serious: Yes (Disabling, Other)
  Sender: FDA-Public Use
  Company Number: FR-PFIZER INC-2007029710

PATIENT
  Sex: Female

DRUGS (1)
  1. CHAMPIX [Suspect]
     Indication: SMOKING CESSATION THERAPY

REACTIONS (13)
  - ABDOMINAL PAIN UPPER [None]
  - ALTERED STATE OF CONSCIOUSNESS [None]
  - BLOOD PRESSURE INCREASED [None]
  - CONFUSIONAL STATE [None]
  - CONSTIPATION [None]
  - GASTRIC DISORDER [None]
  - GASTROINTESTINAL OBSTRUCTION [None]
  - HEADACHE [None]
  - MALAISE [None]
  - PALPITATIONS [None]
  - PANIC REACTION [None]
  - SPEECH DISORDER [None]
  - VERTIGO [None]
